FAERS Safety Report 9431489 (Version 1)
Quarter: 2013Q3

REPORT INFORMATION
  Report Type: Report from Study
  Country: US (occurrence: US)
  Receive Date: 20130730
  Receipt Date: 20130730
  Transmission Date: 20140515
  Serious: Yes (Other)
  Sender: FDA-Public Use
  Company Number: US-ROCHE-1254650

PATIENT
  Age: 55 Year
  Sex: Male

DRUGS (8)
  1. LUCENTIS [Suspect]
     Indication: DIABETIC RETINAL OEDEMA
     Dosage: RIGHT EYE
     Route: 050
  2. ASPIRIN [Concomitant]
     Route: 065
  3. HUMALOG [Concomitant]
     Route: 065
  4. LANTUS [Concomitant]
     Dosage: 100UNITS/ML SOLUTION
     Route: 058
  5. EXFORGE [Concomitant]
  6. ZETIA [Concomitant]
     Route: 048
  7. BYSTOLIC [Concomitant]
     Route: 065
  8. ATORVASTATIN [Concomitant]
     Route: 048

REACTIONS (4)
  - Blindness unilateral [Unknown]
  - Vision blurred [Unknown]
  - Intraocular pressure increased [Unknown]
  - Visual acuity reduced [Unknown]
